FAERS Safety Report 9197917 (Version 1)
Quarter: 2013Q1

REPORT INFORMATION
  Report Type: Spontaneous
  Country: JP (occurrence: JP)
  Receive Date: 20130328
  Receipt Date: 20130328
  Transmission Date: 20140127
  Serious: Yes (Hospitalization)
  Sender: FDA-Public Use
  Company Number: JP-B.I. PHARMACEUTICALS,INC./RIDGEFIELD-2013-BI-08187NB

PATIENT
  Age: 70 Year
  Sex: Male

DRUGS (1)
  1. PERSANTIN [Suspect]
     Route: 048

REACTIONS (2)
  - Gastric cancer [Unknown]
  - Colon cancer [Unknown]
